FAERS Safety Report 20533665 (Version 1)
Quarter: 2022Q1

REPORT INFORMATION
  Report Type: Spontaneous
  Country: US (occurrence: US)
  Receive Date: 20220301
  Receipt Date: 20220301
  Transmission Date: 20220423
  Serious: No
  Sender: FDA-Public Use
  Company Number: US-PFIZER INC-2021726295

PATIENT
  Age: 64 Year
  Sex: Female

DRUGS (4)
  1. XELJANZ XR [Suspect]
     Active Substance: TOFACITINIB CITRATE
     Indication: Rheumatoid arthritis
     Dosage: 11 MG, DAILY
     Route: 048
     Dates: start: 202106
  2. PRAVASTATIN [Concomitant]
     Active Substance: PRAVASTATIN
     Dosage: UNK
  3. VALSARTAN [Concomitant]
     Active Substance: VALSARTAN
     Dosage: UNK
  4. PREDNISONE [Concomitant]
     Active Substance: PREDNISONE
     Dosage: UNK
     Dates: start: 20211220

REACTIONS (8)
  - Drug ineffective [Unknown]
  - Underdose [Unknown]
  - Product dose omission issue [Unknown]
  - Pain in extremity [Recovering/Resolving]
  - Pain [Unknown]
  - Inflammation [Recovering/Resolving]
  - Fatigue [Unknown]
  - Blood cholesterol increased [Unknown]

NARRATIVE: CASE EVENT DATE: 20211201
